FAERS Safety Report 15894524 (Version 2)
Quarter: 2019Q2

REPORT INFORMATION
  Report Type: Spontaneous
  Country: US (occurrence: US)
  Receive Date: 20190131
  Receipt Date: 20190415
  Transmission Date: 20190711
  Serious: No
  Sender: FDA-Public Use
  Company Number: US-ORPHAN EUROPE-2061976

PATIENT
  Age: 37 Year
  Sex: Female

DRUGS (1)
  1. CYSTADANE [Suspect]
     Active Substance: BETAINE
     Indication: HOMOCYSTINURIA
     Route: 048

REACTIONS (4)
  - Nasopharyngitis [Unknown]
  - Laryngitis [Unknown]
  - Asthma [Unknown]
  - Product dose omission [Unknown]

NARRATIVE: CASE EVENT DATE: 20181122
